FAERS Safety Report 5245435-2 (Version None)
Quarter: 2007Q1

REPORT INFORMATION
  Report Type: 
  Country: None (occurrence: None)
  Receive Date: 20070223
  Receipt Date: 20070216
  Transmission Date: 20070707
  Serious: Yes (Other)
  Sender: FDA-Public Use
  Company Number: US-SHR-US-2007-003418

PATIENT
  Age: 34 Year
  Sex: Female
  Weight: 63 kg

DRUGS (4)
  1. MIRENA [Suspect]
     Indication: CONTRACEPTION
     Dosage: 20 A?G/DAY, CONT
     Route: 015
     Dates: start: 20040915
  2. ZOLOFT [Concomitant]
     Dosage: 50 MG, UNK
     Dates: start: 20040101, end: 20050101
  3. FOLTX [Concomitant]
     Indication: AUTOSOMAL CHROMOSOME ANOMALY
     Dates: start: 20040101, end: 20060101
  4. ASPIRIN [Concomitant]
     Indication: AUTOSOMAL CHROMOSOME ANOMALY
     Dosage: 81 MG, UNK
     Dates: start: 20040101, end: 20060101

REACTIONS (1)
  - MIXED CONNECTIVE TISSUE DISEASE [None]
